FAERS Safety Report 16100354 (Version 3)
Quarter: 2019Q2

REPORT INFORMATION
  Report Type: Spontaneous
  Country: FR (occurrence: FR)
  Receive Date: 20190321
  Receipt Date: 20190621
  Transmission Date: 20190711
  Serious: Yes (Hospitalization, Other)
  Sender: FDA-Public Use
  Company Number: FR-MYLANLABS-2019M1025739

PATIENT
  Age: 1 Month
  Sex: Female

DRUGS (2)
  1. ZOLPIDEM [Suspect]
     Active Substance: ZOLPIDEM\ZOLPIDEM TARTRATE
     Indication: PRODUCT USED FOR UNKNOWN INDICATION
     Dosage: UNK
     Route: 065
  2. TRAMADOL. [Suspect]
     Active Substance: TRAMADOL
     Indication: PRODUCT USED FOR UNKNOWN INDICATION
     Dosage: UNK

REACTIONS (17)
  - Chest discomfort [Recovered/Resolved]
  - Pallor [Unknown]
  - Miosis [Recovered/Resolved]
  - Overdose [Recovering/Resolving]
  - Product use issue [Recovering/Resolving]
  - Somnolence [Recovered/Resolved]
  - Toxicity to various agents [Recovered/Resolved]
  - Hypoventilation [Unknown]
  - Chemical submission [Recovering/Resolving]
  - Off label use [Unknown]
  - Hypotension [Recovered/Resolved]
  - Victim of child abuse [Recovered/Resolved]
  - Generalised tonic-clonic seizure [Recovered/Resolved]
  - Depressed level of consciousness [Recovered/Resolved]
  - Clonus [Recovered/Resolved]
  - Muscle rigidity [Recovered/Resolved]
  - Hypotonia [Unknown]
